FAERS Safety Report 26106056 (Version 1)
Quarter: 2025Q4

REPORT INFORMATION
  Report Type: Spontaneous
  Country: US (occurrence: US)
  Receive Date: 20251201
  Receipt Date: 20251201
  Transmission Date: 20260119
  Serious: No
  Sender: ROCHE
  Company Number: US-ROCHE-10000445119

PATIENT
  Sex: Female

DRUGS (1)
  1. ACTEMRA ACTPEN [Suspect]
     Active Substance: TOCILIZUMAB
     Indication: Rheumatoid arthritis
     Dosage: STRENGTH - 162 MG/0.9M
     Route: 042
     Dates: start: 202501

REACTIONS (5)
  - Joint swelling [Not Recovered/Not Resolved]
  - Arthralgia [Not Recovered/Not Resolved]
  - Alopecia [Not Recovered/Not Resolved]
  - Fibromyalgia [Not Recovered/Not Resolved]
  - Confusional state [Not Recovered/Not Resolved]
